FAERS Safety Report 16655506 (Version 1)
Quarter: 2019Q3

REPORT INFORMATION
  Report Type: Spontaneous
  Country: CN (occurrence: CN)
  Receive Date: 20190801
  Receipt Date: 20190801
  Transmission Date: 20191004
  Serious: Yes (Hospitalization)
  Sender: FDA-Public Use
  Company Number: CN-ROCHE-2364210

PATIENT
  Age: 49 Year
  Sex: Male
  Weight: 62 kg

DRUGS (6)
  1. PEMETREXED DISODIUM [Suspect]
     Active Substance: PEMETREXED DISODIUM
     Indication: NEOPLASM MALIGNANT
     Dosage: DAY 1
     Route: 041
     Dates: start: 20190606
  2. CARBOPLATIN. [Suspect]
     Active Substance: CARBOPLATIN
     Indication: NEOPLASM MALIGNANT
     Dosage: DAY 1
     Route: 041
     Dates: start: 20190606
  3. GRANULOCYTE COLONY STIMULATING FACTOR [Concomitant]
     Active Substance: GRANULOCYTE COLONY-STIMULATING FACTOR NOS
     Indication: BONE MARROW FAILURE
     Route: 065
     Dates: end: 20190625
  4. AVASTIN [Suspect]
     Active Substance: BEVACIZUMAB
     Indication: NEOPLASM MALIGNANT
     Dosage: DAY 1
     Route: 041
     Dates: start: 20190606
  5. THROMBOPOIETIN [Concomitant]
     Active Substance: THROMBOPOIETIN
     Indication: BONE MARROW FAILURE
     Route: 065
     Dates: end: 20190625
  6. INTERLEUKIN-11 [Concomitant]
     Active Substance: OPRELVEKIN
     Indication: PLATELET COUNT INCREASED
     Route: 065
     Dates: start: 20190619

REACTIONS (4)
  - Bone marrow failure [Recovering/Resolving]
  - Asthenia [Unknown]
  - Gingival bleeding [Recovering/Resolving]
  - Swelling [Unknown]

NARRATIVE: CASE EVENT DATE: 20190617
